FAERS Safety Report 7389761-X (Version None)
Quarter: 2011Q2

REPORT INFORMATION
  Report Type: 
  Country: None (occurrence: None)
  Receive Date: 20110401
  Receipt Date: 20110329
  Transmission Date: 20111010
  Serious: Yes (Death, Hospitalization)
  Sender: FDA-Public Use
  Company Number: US-PFIZER INC-2011068962

PATIENT
  Age: 58 Year
  Sex: Female
  Weight: 86.5 kg

DRUGS (2)
  1. SUNITINIB MALATE [Suspect]
     Indication: GLIOBLASTOMA MULTIFORME
     Dosage: 50 MG, PO QD FOR WEEKS 1-2, CYCLE 1 AND 2+
     Route: 048
     Dates: start: 20101117
  2. EMD 121974 [Suspect]
     Indication: GLIOBLASTOMA MULTIFORME
     Dosage: 2000 MG, IV OVER 1HR 2X WEEKLY, 72 HRS APART OF WEEKS 3 AND 4 (4 DOSES TOTAL)
     Route: 042
     Dates: start: 20101117

REACTIONS (2)
  - HEMIPARESIS [None]
  - DEATH [None]
